FAERS Safety Report 7111061-3 (Version None)
Quarter: 2010Q4

REPORT INFORMATION
  Report Type: 
  Country: None (occurrence: None)
  Receive Date: 20101112
  Receipt Date: 20101026
  Transmission Date: 20110411
  Serious: Yes (Other)
  Sender: FDA-Public Use
  Company Number: 2010-3715

PATIENT
  Age: 57 Year
  Sex: Female

DRUGS (2)
  1. DYSPORT [Suspect]
     Indication: SKIN WRINKLING
     Dosage: 50 UNITS (50 UNITS, SINGLE, CYCLE), INTRAMUSCULAR
     Route: 030
     Dates: start: 20101013, end: 20101013
  2. NEURONTIN [Concomitant]

REACTIONS (1)
  - HEADACHE [None]
